FAERS Safety Report 21467627 (Version 1)
Quarter: 2022Q4

REPORT INFORMATION
  Report Type: Spontaneous
  Country: US (occurrence: US)
  Receive Date: 20221017
  Receipt Date: 20221017
  Transmission Date: 20230113
  Serious: No
  Sender: FDA-Public Use
  Company Number: US-ALLERGAN-2134281US

PATIENT
  Sex: Male

DRUGS (2)
  1. LINZESS [Interacting]
     Active Substance: LINACLOTIDE
     Indication: Constipation
     Dosage: UNK
  2. MIRALAX [Interacting]
     Active Substance: POLYETHYLENE GLYCOL 3350
     Indication: Product used for unknown indication
     Dosage: UNK EVERY 2 DAYS

REACTIONS (1)
  - Diarrhoea [Recovered/Resolved]
